FAERS Safety Report 6619995-0 (Version None)
Quarter: 2010Q1

REPORT INFORMATION
  Report Type: 
  Country: None (occurrence: None)
  Receive Date: 20100309
  Receipt Date: 20100301
  Transmission Date: 20100710
  Serious: Yes (Hospitalization)
  Sender: FDA-Public Use
  Company Number: NL-ASTRAZENECA-2010SE08847

PATIENT
  Age: 40 Year
  Sex: Female

DRUGS (1)
  1. NAROPIN [Suspect]
     Indication: ALLERGY TEST
     Dosage: 0,075-0,75 MG
     Route: 058
     Dates: start: 20090924, end: 20090924

REACTIONS (9)
  - DYSPHONIA [None]
  - DYSPNOEA [None]
  - HEADACHE [None]
  - HYPERSENSITIVITY [None]
  - NAUSEA [None]
  - PYREXIA [None]
  - RASH PRURITIC [None]
  - SOMNOLENCE [None]
  - VOMITING [None]
